FAERS Safety Report 16430281 (Version 1)
Quarter: 2019Q2

REPORT INFORMATION
  Report Type: Spontaneous
  Country: SE (occurrence: SE)
  Receive Date: 20190614
  Receipt Date: 20190614
  Transmission Date: 20190711
  Serious: Yes (Life-Threatening)
  Sender: FDA-Public Use
  Company Number: SE-ACCORD-132766

PATIENT
  Age: 82 Year
  Sex: Male

DRUGS (8)
  1. OXASCAND [Concomitant]
     Active Substance: OXAZEPAM
  2. DETREMIN [Concomitant]
  3. OMEPRAZOLE. [Concomitant]
     Active Substance: OMEPRAZOLE
  4. WARAN [Suspect]
     Active Substance: WARFARIN SODIUM
     Indication: ATRIAL FIBRILLATION
     Route: 048
     Dates: start: 2008
  5. FINASTERIDE. [Concomitant]
     Active Substance: FINASTERIDE
  6. ZOPICLONE [Concomitant]
     Active Substance: ZOPICLONE
  7. SIMVASTATIN. [Suspect]
     Active Substance: SIMVASTATIN
     Indication: PRODUCT USED FOR UNKNOWN INDICATION
     Route: 048
  8. ATENOLOL/ATENOLOL HYDROCHLORIDE [Concomitant]

REACTIONS (1)
  - Cerebral haemorrhage [Not Recovered/Not Resolved]

NARRATIVE: CASE EVENT DATE: 20190420
